FAERS Safety Report 4797301-4 (Version None)
Quarter: 2005Q4

REPORT INFORMATION
  Report Type: 
  Country: None (occurrence: None)
  Receive Date: 20051011
  Receipt Date: 20051011
  Transmission Date: 20060501
  Serious: Yes (Hospitalization)
  Sender: FDA-Public Use
  Company Number: None

PATIENT
  Age: 68 Year
  Sex: Male
  Weight: 79.4 kg

DRUGS (1)
  1. LISINOPRIL [Suspect]
     Dates: start: 20050401

REACTIONS (1)
  - ANGIONEUROTIC OEDEMA [None]
